FAERS Safety Report 4455803-4 (Version None)
Quarter: 2004Q3

REPORT INFORMATION
  Report Type: 
  Country: None (occurrence: None)
  Receive Date: 20040917
  Receipt Date: 20040831
  Transmission Date: 20050211
  Serious: Yes (Hospitalization)
  Sender: FDA-Public Use
  Company Number: FR_040904668

PATIENT
  Age: 32 Year
  Sex: Male

DRUGS (1)
  1. ZYPREXA [Suspect]
     Indication: SCHIZOPHRENIA
     Dosage: 20 MG DAY
     Dates: start: 20020101

REACTIONS (4)
  - CONDITION AGGRAVATED [None]
  - HEPATITIS B [None]
  - LEUKOPENIA [None]
  - LYMPHOMA [None]
